FAERS Safety Report 7994344-4 (Version None)
Quarter: 2011Q4

REPORT INFORMATION
  Report Type: 
  Country: None (occurrence: None)
  Receive Date: 20111220
  Receipt Date: 20110419
  Transmission Date: 20120403
  Serious: No
  Sender: FDA-Public Use
  Company Number: US-GLAXOSMITHKLINE-A0923592A

PATIENT
  Age: 34 Year
  Sex: Male

DRUGS (2)
  1. NO CONCURRENT MEDICATION [Concomitant]
  2. SORIATANE [Suspect]
     Indication: PSORIASIS
     Dosage: 1CAP PER DAY
     Route: 048
     Dates: start: 20110221, end: 20110321

REACTIONS (1)
  - DRUG INEFFECTIVE [None]
